FAERS Safety Report 23636737 (Version 2)
Quarter: 2024Q2

REPORT INFORMATION
  Report Type: Spontaneous
  Country: JP (occurrence: JP)
  Receive Date: 20240315
  Receipt Date: 20240510
  Transmission Date: 20240717
  Serious: Yes (Hospitalization)
  Sender: FDA-Public Use
  Company Number: JP-JNJFOC-20240343513

PATIENT

DRUGS (3)
  1. DARATUMUMAB [Suspect]
     Active Substance: DARATUMUMAB
     Indication: Product used for unknown indication
     Dosage: DOSE UNKNOWN
     Route: 058
  2. POMALIDOMIDE [Concomitant]
     Active Substance: POMALIDOMIDE
     Dosage: DOSE UNKNOWN
     Route: 048
  3. DEXAMETHASONE [Concomitant]
     Active Substance: DEXAMETHASONE
     Dosage: DOSE UNKNOWN
     Route: 065

REACTIONS (2)
  - Hospitalisation [Unknown]
  - Pyrexia [Unknown]
